FAERS Safety Report 18231711 (Version 1)
Quarter: 2020Q3

REPORT INFORMATION
  Report Type: Spontaneous
  Country: GB (occurrence: FR)
  Receive Date: 20200904
  Receipt Date: 20200904
  Transmission Date: 20201103
  Serious: Yes (Hospitalization, Other)
  Sender: FDA-Public Use
  Company Number: FR-ASTELLAS-2020US030235

PATIENT
  Sex: Male

DRUGS (1)
  1. TARCEVA [Suspect]
     Active Substance: ERLOTINIB HYDROCHLORIDE
     Indication: LUNG CANCER METASTATIC
     Dosage: UNK, UNKNOWN FREQ.
     Route: 048

REACTIONS (4)
  - Productive cough [Unknown]
  - Abdominal pain upper [Unknown]
  - Epilepsy [Unknown]
  - Rash [Unknown]
